FAERS Safety Report 9214122 (Version 3)
Quarter: 2014Q1

REPORT INFORMATION
  Report Type: Report from Study
  Country: JP (occurrence: JP)
  Receive Date: 20130405
  Receipt Date: 20140109
  Transmission Date: 20141002
  Serious: Yes (Other)
  Sender: FDA-Public Use
  Company Number: JP-BAYER-2013-042098

PATIENT
  Age: 67 Year
  Sex: Male
  Weight: 64 kg

DRUGS (11)
  1. RIVAROXABAN [Suspect]
     Indication: CEREBROVASCULAR ACCIDENT PROPHYLAXIS
     Dosage: 15 MG, QD
     Route: 048
     Dates: start: 20120907, end: 20130325
  2. RIVAROXABAN [Interacting]
     Indication: THROMBOSIS PROPHYLAXIS
  3. RIVAROXABAN [Interacting]
     Indication: ATRIAL FIBRILLATION
  4. ACETYLSALICYLIC ACID({=100 MG) [Interacting]
     Dosage: 100 MG, QD
     Route: 048
     Dates: end: 20130222
  5. NU-LOTAN [Concomitant]
     Dosage: DAILY DOSE 25 MG
     Route: 048
     Dates: end: 20130325
  6. ITOROL [Concomitant]
     Dosage: DAILY DOSE 40 MG
     Route: 048
     Dates: end: 20130325
  7. CONIEL [Concomitant]
     Dosage: DAILY DOSE 8 MG
     Route: 048
     Dates: end: 20130325
  8. EPADEL [Concomitant]
     Indication: PROPHYLAXIS
     Dosage: DAILY DOSE 1800 MG
     Route: 048
     Dates: end: 20120908
  9. ALLOPURINOL [Concomitant]
     Dosage: DAILY DOSE 100 MG
     Route: 048
     Dates: end: 20130325
  10. CIBENOL [Concomitant]
     Dosage: DAILY DOSE 300 MG
     Route: 048
     Dates: start: 20120908, end: 20130325
  11. NEXIUM [Concomitant]
     Indication: PROPHYLAXIS
     Dosage: DAILY DOSE 10 MG
     Route: 048
     Dates: start: 20121018, end: 20130325

REACTIONS (3)
  - Haemorrhage subcutaneous [Recovered/Resolved]
  - Drug interaction [None]
  - Conjunctival haemorrhage [Recovered/Resolved]
